FAERS Safety Report 5324829-0 (Version None)
Quarter: 2007Q2

REPORT INFORMATION
  Report Type: 
  Country: None (occurrence: None)
  Receive Date: 20070515
  Receipt Date: 20070509
  Transmission Date: 20071010
  Serious: Yes (Hospitalization)
  Sender: FDA-Public Use
  Company Number: FRWYE608809MAY07

PATIENT
  Age: 85 Year
  Sex: Male

DRUGS (6)
  1. EFFEXOR XR [Suspect]
     Indication: DEPRESSION
     Dosage: 75 MG TOTAL DAILY
     Route: 048
     Dates: start: 20070207, end: 20070227
  2. OMIX [Concomitant]
     Indication: PROSTATIC DISORDER
     Route: 048
  3. SERESTA [Concomitant]
     Indication: ANXIETY
     Route: 048
  4. NEURONTIN [Concomitant]
     Indication: EPILEPSY
     Route: 048
     Dates: start: 20070207
  5. DAFALGAN [Suspect]
     Indication: HEADACHE
     Route: 048
     Dates: start: 20070207, end: 20070227
  6. SPASFON [Concomitant]
     Indication: ABDOMINAL PAIN
     Route: 048

REACTIONS (6)
  - CHOLELITHIASIS [None]
  - CHROMATURIA [None]
  - FAECES DISCOLOURED [None]
  - HEPATIC ENZYME INCREASED [None]
  - HEPATITIS [None]
  - JAUNDICE [None]
